FAERS Safety Report 25314560 (Version 2)
Quarter: 2025Q3

REPORT INFORMATION
  Report Type: Report from Study
  Country: EU (occurrence: EU)
  Receive Date: 20250514
  Receipt Date: 20250708
  Transmission Date: 20251020
  Serious: Yes (Hospitalization, Other)
  Sender: TAKEDA
  Company Number: EU-TAKEDA-2023TUS111516

PATIENT
  Age: 69 Year
  Sex: Female

DRUGS (23)
  1. HUMAN IMMUNOGLOBULIN G\HYALURONIDASE RECOMBINANT HUMAN [Suspect]
     Active Substance: HUMAN IMMUNOGLOBULIN G\HYALURONIDASE (HUMAN RECOMBINANT)
     Indication: Immunodeficiency
     Dosage: UNK UNK, MONTHLY
     Dates: start: 20230524
  2. HUMAN IMMUNOGLOBULIN G\HYALURONIDASE RECOMBINANT HUMAN [Suspect]
     Active Substance: HUMAN IMMUNOGLOBULIN G\HYALURONIDASE (HUMAN RECOMBINANT)
     Dosage: 100 MILLILITER, Q4WEEKS
  3. HUMAN IMMUNOGLOBULIN G\HYALURONIDASE RECOMBINANT HUMAN [Suspect]
     Active Substance: HUMAN IMMUNOGLOBULIN G\HYALURONIDASE (HUMAN RECOMBINANT)
     Dosage: 300 MILLILITER, Q4WEEKS
  4. HUMAN IMMUNOGLOBULIN G\HYALURONIDASE RECOMBINANT HUMAN [Suspect]
     Active Substance: HUMAN IMMUNOGLOBULIN G\HYALURONIDASE (HUMAN RECOMBINANT)
     Dosage: 300 MILLILITER, Q4WEEKS
  5. HUMAN IMMUNOGLOBULIN G\HYALURONIDASE RECOMBINANT HUMAN [Suspect]
     Active Substance: HUMAN IMMUNOGLOBULIN G\HYALURONIDASE (HUMAN RECOMBINANT)
     Dosage: 100 MILLILITER, MONTHLY
     Dates: start: 202305
  6. LEVOTHYROXINE SODIUM [Concomitant]
     Active Substance: LEVOTHYROXINE SODIUM
     Indication: Thyroid disorder
     Dosage: 0.1 MILLIGRAM, QD
  7. NEXIUM [Concomitant]
     Active Substance: ESOMEPRAZOLE MAGNESIUM
     Indication: Gastrointestinal disorder
  8. LYRICA [Concomitant]
     Active Substance: PREGABALIN
     Indication: Product used for unknown indication
     Dosage: 50 MILLIGRAM, QD
  9. LYRICA [Concomitant]
     Active Substance: PREGABALIN
     Dosage: 25 MILLIGRAM, QD
  10. LYRICA [Concomitant]
     Active Substance: PREGABALIN
     Dosage: 150 MILLIGRAM, QD
  11. ASCORBIC ACID\CHONDROITIN SULFATE (BOVINE)\GLUCOSAMINE SULFATE\MANGANE [Concomitant]
     Active Substance: ASCORBIC ACID\CHONDROITIN SULFATE (BOVINE)\GLUCOSAMINE SULFATE\MANGANESE
     Indication: Bone disorder
  12. ROSUVASTATIN [Concomitant]
     Active Substance: ROSUVASTATIN
     Indication: Blood cholesterol abnormal
     Dosage: UNK UNK, QD
  13. GLUCOPHAGE [Concomitant]
     Active Substance: METFORMIN HYDROCHLORIDE
     Indication: Hypoglycaemia
     Dosage: UNK UNK, BID
  14. GLUCOPHAGE [Concomitant]
     Active Substance: METFORMIN HYDROCHLORIDE
     Indication: Weight decreased
  15. ACETAMINOPHEN [Concomitant]
     Active Substance: ACETAMINOPHEN
     Indication: Pain in extremity
  16. ACETAMINOPHEN [Concomitant]
     Active Substance: ACETAMINOPHEN
     Indication: Headache
  17. JARDIANCE [Concomitant]
     Active Substance: EMPAGLIFLOZIN
     Indication: Cardiac disorder
  18. JARDIANCE [Concomitant]
     Active Substance: EMPAGLIFLOZIN
     Dosage: 10 MILLIGRAM, QD
  19. DIGOXIN [Concomitant]
     Active Substance: DIGOXIN
     Indication: Cardiac disorder
     Dosage: 0.25 MILLIGRAM, QD
  20. BISOPROLOL FUMARATE [Concomitant]
     Active Substance: BISOPROLOL FUMARATE
     Dosage: 5 MILLIGRAM, QD
  21. XARELTO [Concomitant]
     Active Substance: RIVAROXABAN
     Indication: Thrombosis prophylaxis
  22. LASIX [Concomitant]
     Active Substance: FUROSEMIDE
     Indication: Pleural effusion
     Dosage: UNK UNK, QD
  23. VANCOMYCIN HYDROCHLORIDE [Concomitant]
     Active Substance: VANCOMYCIN HYDROCHLORIDE
     Dosage: 10 MILLIGRAM, BID

REACTIONS (15)
  - Atrial fibrillation [Not Recovered/Not Resolved]
  - Thrombosis [Unknown]
  - Pulmonary oedema [Not Recovered/Not Resolved]
  - Administration site pain [Recovered/Resolved]
  - Administration site induration [Recovered/Resolved]
  - Needle issue [Not Recovered/Not Resolved]
  - Incorrect dose administered [Not Recovered/Not Resolved]
  - Administration site erythema [Unknown]
  - Administration site swelling [Recovered/Resolved]
  - Administration site discharge [Unknown]
  - Device physical property issue [Unknown]
  - Heart rate increased [Unknown]
  - Decreased immune responsiveness [Unknown]
  - Abdominal distension [Unknown]
  - Headache [Recovered/Resolved]

NARRATIVE: CASE EVENT DATE: 20230525
